FAERS Safety Report 10704118 (Version 1)
Quarter: 2015Q1

REPORT INFORMATION
  Report Type: Spontaneous
  Country: US (occurrence: None)
  Receive Date: 20150109
  Receipt Date: 20150109
  Transmission Date: 20150721
  Serious: Yes (Life-Threatening, Hospitalization, Disabling)
  Sender: FDA-Public Use
  Company Number: None

PATIENT
  Age: 14 Year
  Sex: Male
  Weight: 52 kg

DRUGS (2)
  1. ECULIZUMAB [Suspect]
     Active Substance: ECULIZUMAB
     Indication: THROMBOTIC MICROANGIOPATHY
     Dosage: 900 MG ?WEEKLY X 4 ?IV
     Route: 042
     Dates: start: 20130905, end: 20130924
  2. ECULIZUMAB [Suspect]
     Active Substance: ECULIZUMAB
     Indication: RENAL DISORDER
     Dosage: 900 MG ?WEEKLY X 4 ?IV
     Route: 042
     Dates: start: 20130905, end: 20130924

REACTIONS (1)
  - Cytogenetic abnormality [None]

NARRATIVE: CASE EVENT DATE: 20141125
